FAERS Safety Report 6210979-3 (Version None)
Quarter: 2009Q2

REPORT INFORMATION
  Report Type: 
  Country: None (occurrence: None)
  Receive Date: 20090602
  Receipt Date: 20080402
  Transmission Date: 20091009
  Serious: Yes (Other)
  Sender: FDA-Public Use
  Company Number: US-ASTRAZENECA-2008UW00663

PATIENT
  Age: 44 Year
  Sex: Male
  Weight: 117 kg

DRUGS (30)
  1. SEROQUEL [Suspect]
     Indication: DEPRESSION
     Route: 048
     Dates: start: 20030101, end: 20070701
  2. SEROQUEL [Suspect]
     Indication: BIPOLAR DISORDER
     Route: 048
     Dates: start: 20030101, end: 20070701
  3. SEROQUEL [Suspect]
     Indication: SCHIZOPHRENIA
     Route: 048
     Dates: start: 20030101, end: 20070701
  4. SEROQUEL [Suspect]
     Dosage: VARIOUS DOSES
     Route: 048
     Dates: start: 20030101, end: 20070701
  5. SEROQUEL [Suspect]
     Dosage: VARIOUS DOSES
     Route: 048
     Dates: start: 20030101, end: 20070701
  6. SEROQUEL [Suspect]
     Dosage: VARIOUS DOSES
     Route: 048
     Dates: start: 20030101, end: 20070701
  7. SEROQUEL [Suspect]
     Dosage: 200-400 MG
     Route: 048
     Dates: start: 20030101
  8. SEROQUEL [Suspect]
     Dosage: 200-400 MG
     Route: 048
     Dates: start: 20030101
  9. SEROQUEL [Suspect]
     Dosage: 200-400 MG
     Route: 048
     Dates: start: 20030101
  10. DEPAKOTE [Concomitant]
     Dates: start: 20020101
  11. TRAZODONE HCL [Concomitant]
     Dates: start: 20020101
  12. LOXAPINE [Concomitant]
     Dates: start: 20020101
  13. HALDOL [Concomitant]
     Dates: start: 20020501, end: 20060801
  14. RISPERDAL [Concomitant]
     Dates: start: 20060801, end: 20070501
  15. THORAZINE [Concomitant]
     Dates: start: 19800101, end: 19800101
  16. ZYPREXA [Concomitant]
     Dosage: VARIOUS DOSES, INCLUDING BUT NOT LIMITED TO 20 MG
     Dates: start: 20020601, end: 20020101
  17. PROLIXIN [Concomitant]
  18. GEODON [Concomitant]
     Dosage: 2007
  19. LOXITANE [Concomitant]
     Dates: start: 20030401
  20. ENALAPRIL MALEATE [Concomitant]
     Dosage: SUFFICIENT QUANTITY
     Route: 048
     Dates: start: 20040429
  21. NIFEDIPINE [Concomitant]
     Route: 048
     Dates: start: 20040429
  22. TRICOR [Concomitant]
     Dosage: SUFFICIENT QUANTITY
     Route: 048
     Dates: start: 20040429
  23. CLARINEX [Concomitant]
     Route: 048
     Dates: start: 20041019
  24. COMBIVENT [Concomitant]
     Dosage: TWO TIMES A DAY
     Route: 045
     Dates: start: 20041019
  25. VASOTEC [Concomitant]
     Route: 048
     Dates: start: 20041019
  26. DOCUSATE SODIUM [Concomitant]
     Route: 048
     Dates: start: 20041019
  27. PREVACID [Concomitant]
     Route: 048
     Dates: start: 20041019
  28. COGENTIN [Concomitant]
     Route: 048
     Dates: start: 20041019
  29. CLONIDINE [Concomitant]
     Route: 048
     Dates: start: 20041019
  30. DIFLUCAN [Concomitant]
     Route: 048
     Dates: start: 20041019

REACTIONS (7)
  - BLOOD TRIGLYCERIDES INCREASED [None]
  - CARDIAC OPERATION [None]
  - DIABETES MELLITUS [None]
  - DYSPNOEA [None]
  - HYPERTENSION [None]
  - INSULIN-REQUIRING TYPE 2 DIABETES MELLITUS [None]
  - PNEUMONIA [None]
